FAERS Safety Report 9411479 (Version 1)
Quarter: 2013Q3

REPORT INFORMATION
  Report Type: Spontaneous
  Country: DK (occurrence: DK)
  Receive Date: 20130722
  Receipt Date: 20130722
  Transmission Date: 20140515
  Serious: Yes (Other)
  Sender: FDA-Public Use
  Company Number: DK-AMGEN-DNKSP2013050316

PATIENT
  Age: 68 Year
  Sex: 0
  Weight: 41 kg

DRUGS (10)
  1. PROLIA [Suspect]
     Indication: OSTEOPOROSIS
     Dosage: 60 MG/ML, Q6MO
     Dates: start: 20110531, end: 20111020
  2. FENTANYL [Concomitant]
  3. LANSOPRAZOL [Concomitant]
  4. MIRTAZAPINE [Concomitant]
  5. SIFROL [Concomitant]
  6. UNILOC [Concomitant]
  7. MADOPAR [Concomitant]
  8. MABLET [Concomitant]
  9. UNIKALK BASIC [Concomitant]
  10. ZINC [Concomitant]

REACTIONS (1)
  - Osteonecrosis of jaw [Unknown]
